FAERS Safety Report 8432906-0 (Version None)
Quarter: 2012Q2

REPORT INFORMATION
  Report Type: 
  Country: None (occurrence: None)
  Receive Date: 20120613
  Receipt Date: 20120604
  Transmission Date: 20120825
  Serious: Yes (Other)
  Sender: FDA-Public Use
  Company Number: CA-JNJFOC-20120602335

PATIENT
  Sex: Male
  Weight: 75 kg

DRUGS (4)
  1. ACETAMINOPHEN [Concomitant]
     Indication: PREMEDICATION
     Route: 048
  2. REMICADE [Suspect]
     Indication: CROHN'S DISEASE
     Route: 042
     Dates: start: 20090401
  3. HYDROCORTISONE [Concomitant]
     Route: 042
  4. BENADRYL [Concomitant]
     Route: 065

REACTIONS (1)
  - FISTULA REPAIR [None]
